FAERS Safety Report 5607501-9 (Version None)
Quarter: 2008Q1

REPORT INFORMATION
  Report Type: 
  Country: None (occurrence: None)
  Receive Date: 20080125
  Receipt Date: 20080115
  Transmission Date: 20080703
  Serious: Yes (Hospitalization)
  Sender: FDA-Public Use
  Company Number: GXKR2008GB00815

PATIENT
  Age: 65 Year
  Sex: Male

DRUGS (9)
  1. PAROXETINE HCL [Suspect]
     Indication: AGORAPHOBIA
     Dosage: 20 MG, ORAL
     Route: 048
     Dates: end: 20071026
  2. ATORVASTATIN CALCIUM [Concomitant]
  3. DIAZEPAM [Concomitant]
  4. FUROSEMIDE [Concomitant]
  5. MIRTAZAPINE [Concomitant]
  6. OMEPRAZOLE [Concomitant]
  7. PERINDOPRIL [Concomitant]
  8. WARFARIN SODIUM [Concomitant]
  9. ZOPICLONE             (ZOPICLONE) [Concomitant]

REACTIONS (3)
  - AFFECT LABILITY [None]
  - DRUG WITHDRAWAL SYNDROME [None]
  - PSYCHOTIC DISORDER [None]
